FAERS Safety Report 23932426 (Version 1)
Quarter: 2024Q2

REPORT INFORMATION
  Report Type: Spontaneous
  Country: US (occurrence: US)
  Receive Date: 20240603
  Receipt Date: 20240603
  Transmission Date: 20240716
  Serious: Yes (Other)
  Sender: FDA-Public Use
  Company Number: US-MYLANLABS-2024M1048438

PATIENT
  Age: 52 Year
  Sex: Male

DRUGS (5)
  1. GEMCITABINE [Suspect]
     Active Substance: GEMCITABINE
     Indication: Cutaneous T-cell lymphoma
     Dosage: UNK
     Route: 065
  2. PRALATREXATE [Suspect]
     Active Substance: PRALATREXATE
     Indication: Cutaneous T-cell lymphoma
     Dosage: UNK
     Route: 065
  3. ROMIDEPSIN [Suspect]
     Active Substance: ROMIDEPSIN
     Indication: Cutaneous T-cell lymphoma
     Dosage: UNK
     Route: 065
  4. DECITABINE [Suspect]
     Active Substance: DECITABINE
     Indication: Cutaneous T-cell lymphoma
     Dosage: 20 MILLIGRAM/SQ. METER, 28D CYCLE,INFUSION ON DAYS 1 TO 3
     Route: 065
  5. PEMBROLIZUMAB [Suspect]
     Active Substance: PEMBROLIZUMAB
     Indication: Cutaneous T-cell lymphoma
     Dosage: 200 MILLIGRAM, Q21D,INFUSION ON DAY 8 ADMINISTERED EVERY 21 DAYS
     Route: 065

REACTIONS (2)
  - Drug ineffective [Unknown]
  - Disease progression [Unknown]
